FAERS Safety Report 4472222-5 (Version None)
Quarter: 2004Q4

REPORT INFORMATION
  Report Type: 
  Country: None (occurrence: None)
  Receive Date: 20041012
  Receipt Date: 20041005
  Transmission Date: 20050328
  Serious: Yes (Life-Threatening, Hospitalization, Disabling)
  Sender: FDA-Public Use
  Company Number: US-MERCK-0410USA00678

PATIENT
  Age: 59 Year
  Sex: Male

DRUGS (8)
  1. PLAVIX [Concomitant]
     Route: 065
  2. ALLEGRA [Concomitant]
     Route: 065
  3. METOPROLOL [Concomitant]
     Route: 065
  4. NIASPAN [Concomitant]
     Route: 065
  5. PRILOSEC [Concomitant]
     Route: 065
  6. VIOXX [Suspect]
     Indication: ARTHRITIS
     Route: 048
     Dates: start: 20020101, end: 20040930
  7. CRESTOR [Concomitant]
     Route: 065
  8. BEXTRA [Concomitant]
     Route: 065

REACTIONS (1)
  - MYOCARDIAL INFARCTION [None]
